FAERS Safety Report 18933300 (Version 1)
Quarter: 2021Q1

REPORT INFORMATION
  Report Type: Spontaneous
  Country: CA (occurrence: CA)
  Receive Date: 20210224
  Receipt Date: 20210224
  Transmission Date: 20210420
  Serious: Yes (Other)
  Sender: FDA-Public Use
  Company Number: NVSC2021CA038225

PATIENT
  Age: 37 Year
  Sex: Female

DRUGS (2)
  1. SANDOZ AMOXI?CLAV [Suspect]
     Active Substance: AMOXICILLIN\CLAVULANIC ACID
     Indication: URINARY TRACT INFECTION
     Dosage: 1 DF (2 EVERY 1 DAY)
     Route: 048
  2. METRONIDAZOLE. [Concomitant]
     Active Substance: METRONIDAZOLE
     Indication: PRODUCT USED FOR UNKNOWN INDICATION
     Dosage: UNK
     Route: 065

REACTIONS (7)
  - Faeces soft [Unknown]
  - Clostridium test positive [Unknown]
  - Diarrhoea [Unknown]
  - Chills [Unknown]
  - Abdominal discomfort [Unknown]
  - Pain [Unknown]
  - Pyrexia [Unknown]
